FAERS Safety Report 11405783 (Version 1)
Quarter: 2015Q3

REPORT INFORMATION
  Report Type: Spontaneous
  Country: US (occurrence: US)
  Receive Date: 20150821
  Receipt Date: 20150821
  Transmission Date: 20151125
  Serious: Yes (Hospitalization, Other)
  Sender: FDA-Public Use
  Company Number: US-GLAXOSMITHKLINE-US2015120027

PATIENT
  Age: 61 Year
  Sex: Male

DRUGS (3)
  1. METOPROLOL TARTRATE. [Concomitant]
     Active Substance: METOPROLOL TARTRATE
  2. ADVAIR DISKUS [Suspect]
     Active Substance: FLUTICASONE PROPIONATE\SALMETEROL XINAFOATE
     Indication: DYSPNOEA
     Dosage: 1 PUFF(S), BID
     Route: 055
     Dates: start: 201306
  3. LISINOPRIL. [Concomitant]
     Active Substance: LISINOPRIL

REACTIONS (6)
  - Breath sounds abnormal [Recovering/Resolving]
  - Pyrexia [Recovered/Resolved]
  - Cough [Recovering/Resolving]
  - Dehydration [Recovered/Resolved]
  - Dyspnoea [Unknown]
  - Pneumonia legionella [Recovered/Resolved]

NARRATIVE: CASE EVENT DATE: 201411
